FAERS Safety Report 5236769-6 (Version None)
Quarter: 2007Q1

REPORT INFORMATION
  Report Type: 
  Country: None (occurrence: None)
  Receive Date: 20061208
  Receipt Date: 20050519
  Transmission Date: 20070707
  Serious: Yes (Other)
  Sender: FDA-Public Use
  Company Number: 2005UW07780

PATIENT
  Age: 51 Year
  Sex: Female

DRUGS (5)
  1. CRESTOR [Suspect]
     Indication: BLOOD CHOLESTEROL INCREASED
     Dosage: 5 MG PO
     Route: 048
     Dates: start: 20050501
  2. ZOCOR [Concomitant]
  3. NO MATCH [Concomitant]
  4. DYAZIDE [Concomitant]
  5. ZYRTEC [Concomitant]

REACTIONS (1)
  - HOT FLUSH [None]
